FAERS Safety Report 4750229-8 (Version None)
Quarter: 2005Q3

REPORT INFORMATION
  Report Type: 
  Country: None (occurrence: None)
  Receive Date: 20050818
  Receipt Date: 20050809
  Transmission Date: 20060218
  Serious: Yes (Death, Hospitalization, Other)
  Sender: FDA-Public Use
  Company Number: 163-20785-05070006

PATIENT
  Age: 51 Year
  Sex: Female

DRUGS (9)
  1. THALOMID [Suspect]
     Indication: MULTIPLE MYELOMA
     Dosage: 100-200MG, DAILY, ORAL
     Route: 048
     Dates: start: 20030610, end: 20041201
  2. DECADRON [Suspect]
     Dosage: 2 CYCLES, ENDING MAY05
  3. MELPHALAN (MELPHALAN) [Suspect]
     Indication: MULTIPLE MYELOMA
  4. CISPLATIN [Suspect]
     Indication: MULTIPLE MYELOMA
  5. ADRIAMYCIN PFS [Suspect]
     Indication: MULTIPLE MYELOMA
  6. CYCLOPHOSPHAMIDE [Suspect]
     Indication: MULTIPLE MYELOMA
  7. ETOPOSIDE [Suspect]
     Indication: MULTIPLE MYELOMA
  8. BORTEZOMIB (BORTEZOMIB) [Suspect]
     Indication: MULTIPLE MYELOMA
     Dosage: 4 CYCLES, ENDING 09DEC2004
  9. PENTAMIDINE (PENTAMIDINE) [Concomitant]

REACTIONS (8)
  - ANAEMIA [None]
  - DISEASE PROGRESSION [None]
  - HAEMODIALYSIS [None]
  - MYOPATHY STEROID [None]
  - NO THERAPEUTIC RESPONSE [None]
  - RENAL FAILURE [None]
  - RESPIRATORY FAILURE [None]
  - STAPHYLOCOCCAL BACTERAEMIA [None]
